FAERS Safety Report 7351608-5 (Version None)
Quarter: 2011Q1

REPORT INFORMATION
  Report Type: 
  Country: None (occurrence: None)
  Receive Date: 20110315
  Receipt Date: 20110309
  Transmission Date: 20110831
  Serious: No
  Sender: FDA-Public Use
  Company Number: US-ROXANE LABORATORIES, INC.-2011-RO-00112RO

PATIENT
  Age: 83 Year
  Sex: Female

DRUGS (3)
  1. PREDNISONE [Suspect]
     Dosage: 7 MG
     Route: 048
     Dates: start: 20110301
  2. XANAX [Concomitant]
     Indication: ANXIETY
  3. PREDNISONE [Suspect]
     Indication: TEMPORAL ARTERITIS
     Dosage: 9 MG
     Route: 048

REACTIONS (6)
  - ABDOMINAL DISCOMFORT [None]
  - BLINDNESS [None]
  - DYSURIA [None]
  - ONYCHOMADESIS [None]
  - WEIGHT INCREASED [None]
  - ALOPECIA [None]
